FAERS Safety Report 5170167-9 (Version None)
Quarter: 2006Q4

REPORT INFORMATION
  Report Type: 
  Country: None (occurrence: None)
  Receive Date: 20061212
  Receipt Date: 20061129
  Transmission Date: 20070319
  Serious: Yes (Hospitalization)
  Sender: FDA-Public Use
  Company Number: FR-ELI_LILLY_AND_COMPANY-FR200611005355

PATIENT
  Age: 75 Year
  Sex: Female

DRUGS (5)
  1. FORTEO [Suspect]
     Indication: OSTEOPOROSIS
     Dosage: 20 UG, DAILY (1/D)
     Route: 058
     Dates: start: 20060116
  2. CETORNAN [Concomitant]
     Dosage: 2 D/F, DAILY (1/D)
     Route: 048
  3. MEPRONIZINE [Concomitant]
     Indication: INSOMNIA
     Dosage: 1 D/F, DAILY (1/D)
  4. OROCAL [Concomitant]
     Indication: OSTEOPOROSIS
     Dosage: 2 D/F, DAILY (1/D)
  5. STABLON [Concomitant]
     Dosage: 2 D/F, DAILY (1/D)

REACTIONS (1)
  - INGUINAL HERNIA, OBSTRUCTIVE [None]
